FAERS Safety Report 7264678-X (Version None)
Quarter: 2011Q1

REPORT INFORMATION
  Report Type: 
  Country: None (occurrence: None)
  Receive Date: 20110131
  Receipt Date: 20110124
  Transmission Date: 20110831
  Serious: No
  Sender: FDA-Public Use
  Company Number: US-PFIZER INC-2011017107

PATIENT
  Sex: Male
  Weight: 102 kg

DRUGS (7)
  1. TAMSULOSIN [Interacting]
     Dosage: 4 MG, 1X/DAY
  2. ACTOS [Concomitant]
     Indication: DIABETES MELLITUS
     Dosage: UNK
     Dates: start: 20000101
  3. TOVIAZ [Interacting]
     Dosage: 8 MG, 1X/DAY
  4. METFORMIN [Concomitant]
     Dosage: UNK
     Dates: start: 20000101
  5. FINASTERIDE [Concomitant]
     Indication: URINARY TRACT DISORDER
     Dosage: 5 MG, UNK
     Dates: start: 20000101
  6. TOVIAZ [Suspect]
     Indication: HYPERTONIC BLADDER
     Dosage: 4 MG, DAILY
     Route: 048
     Dates: start: 20080101
  7. TAMSULOSIN [Interacting]
     Indication: HYPERTONIC BLADDER
     Dosage: 4 MG, 2X/DAY
     Route: 048

REACTIONS (2)
  - DRUG INEFFECTIVE [None]
  - DRUG INTERACTION [None]
